FAERS Safety Report 12495747 (Version 1)
Quarter: 2016Q2

REPORT INFORMATION
  Report Type: Spontaneous
  Country: UA (occurrence: UA)
  Receive Date: 20160624
  Receipt Date: 20160624
  Transmission Date: 20160815
  Serious: Yes (Other)
  Sender: FDA-Public Use
  Company Number: UA-ABBVIE-16P-269-1660689-00

PATIENT
  Age: 37 Year
  Sex: Female

DRUGS (3)
  1. CREON [Suspect]
     Active Substance: PANCRELIPASE AMYLASE\PANCRELIPASE LIPASE\PANCRELIPASE PROTEASE
     Indication: PRODUCT USED FOR UNKNOWN INDICATION
     Route: 048
     Dates: start: 201605, end: 201605
  2. THIOTRIAZOLIN [Concomitant]
     Indication: PRODUCT USED FOR UNKNOWN INDICATION
  3. REOSORBILACT [Concomitant]
     Indication: PRODUCT USED FOR UNKNOWN INDICATION

REACTIONS (4)
  - Vomiting [Recovered/Resolved]
  - Nausea [Recovered/Resolved]
  - Drug hypersensitivity [Recovered/Resolved]
  - Dysgeusia [Recovered/Resolved]

NARRATIVE: CASE EVENT DATE: 201605
